FAERS Safety Report 17593477 (Version 1)
Quarter: 2020Q1

REPORT INFORMATION
  Report Type: Spontaneous
  Country: US (occurrence: US)
  Receive Date: 20200327
  Receipt Date: 20200327
  Transmission Date: 20200409
  Serious: No
  Sender: FDA-Public Use
  Company Number: US-TOPROL ACQUISITION LLC-2019-TOP-001582

PATIENT
  Sex: Female

DRUGS (2)
  1. TOPROL XL [Suspect]
     Active Substance: METOPROLOL SUCCINATE
     Indication: SUPRAVENTRICULAR TACHYCARDIA
     Dosage: 25 MG ONCE DAILY
     Dates: start: 201912
  2. SYNTHROID [Concomitant]
     Active Substance: LEVOTHYROXINE SODIUM
     Indication: PRODUCT USED FOR UNKNOWN INDICATION
     Dosage: UNK, AT A DIFFERENT TIME OF DAY

REACTIONS (2)
  - Nausea [Recovering/Resolving]
  - Adverse event [Unknown]
